FAERS Safety Report 24807376 (Version 2)
Quarter: 2025Q1

REPORT INFORMATION
  Report Type: Report from Study
  Country: CA (occurrence: CA)
  Receive Date: 20250105
  Receipt Date: 20250122
  Transmission Date: 20250409
  Serious: Yes (Other)
  Sender: JOHNSON AND JOHNSON
  Company Number: CA-JNJFOC-20241053346

PATIENT
  Age: 73 Year
  Sex: Female

DRUGS (2)
  1. REMICADE [Suspect]
     Active Substance: INFLIXIMAB
     Indication: Colitis ulcerative
     Route: 041
  2. REMICADE [Suspect]
     Active Substance: INFLIXIMAB
     Route: 041
     Dates: start: 20240711, end: 20250114

REACTIONS (4)
  - Haematochezia [Unknown]
  - Oral candidiasis [Unknown]
  - Frequent bowel movements [Unknown]
  - Treatment failure [Unknown]

NARRATIVE: CASE EVENT DATE: 20240101
